FAERS Safety Report 7003037-1 (Version None)
Quarter: 2010Q3

REPORT INFORMATION
  Report Type: 
  Country: None (occurrence: None)
  Receive Date: 20100920
  Receipt Date: 20100322
  Transmission Date: 20110219
  Serious: No
  Sender: FDA-Public Use
  Company Number: US-ASTRAZENECA-2010SE12467

PATIENT
  Age: 30 Year
  Sex: Female
  Weight: 84.4 kg

DRUGS (6)
  1. SEROQUEL XR [Suspect]
     Indication: BIPOLAR DISORDER
     Route: 048
     Dates: start: 20100315
  2. KLONOPIN [Concomitant]
  3. ACYCLOVIR [Concomitant]
  4. PRILOSEC [Concomitant]
  5. LEXAPRO [Concomitant]
  6. METACLOPRIMIDE [Concomitant]

REACTIONS (2)
  - BRONCHITIS [None]
  - INFECTION [None]
